FAERS Safety Report 8209172-4 (Version None)
Quarter: 2012Q1

REPORT INFORMATION
  Report Type: 
  Country: None (occurrence: None)
  Receive Date: 20120314
  Receipt Date: 20120306
  Transmission Date: 20120608
  Serious: Yes (Hospitalization)
  Sender: FDA-Public Use
  Company Number: IT-BAYER-2011-021585

PATIENT
  Age: 38 Year
  Sex: Male
  Weight: 65 kg

DRUGS (10)
  1. HELIXATE [Suspect]
     Indication: HAEMOPHILIA
     Route: 042
  2. ASPIRIN [Concomitant]
     Dosage: 100 MG, ONCE
     Route: 048
  3. HELIXATE [Suspect]
     Dosage: 16 IU/KG IN 10 MIN, QOD
     Route: 042
  4. ABACAVIR SULFATE/LAMIVUDINE [Concomitant]
  5. CLOPIDOGREL [Suspect]
     Dosage: 75 MG, QD
  6. LOPINAVIR [Concomitant]
  7. HELIXATE [Suspect]
     Dosage: 1000 IU IN 10 MIN, QOD
     Route: 042
  8. ABACAVIR SULFATE/LAMIVUDINE [Concomitant]
  9. GALENIC /LOPINAVIR/RITONAVIR/ [Concomitant]
  10. HELIXATE [Suspect]
     Dosage: 1000 IU, OW

REACTIONS (3)
  - ACUTE MYOCARDIAL INFARCTION [None]
  - HAEMORRHAGIC DIATHESIS [None]
  - HYPERHIDROSIS [None]
